FAERS Safety Report 4913742-6 (Version None)
Quarter: 2006Q1

REPORT INFORMATION
  Report Type: 
  Country: None (occurrence: None)
  Receive Date: 20060216
  Receipt Date: 20060209
  Transmission Date: 20060701
  Serious: Yes (Death)
  Sender: FDA-Public Use
  Company Number: FR-AVENTIS-200610529FR

PATIENT
  Age: 65 Year
  Sex: Female

DRUGS (12)
  1. FLAGYL [Suspect]
     Indication: DIARRHOEA
     Route: 048
     Dates: start: 20060106, end: 20060110
  2. SOLUPRED [Suspect]
     Indication: BRONCHITIS ACUTE
     Route: 048
     Dates: start: 20051228, end: 20060102
  3. OFLOCET [Suspect]
     Indication: DIARRHOEA
     Route: 048
     Dates: start: 20060105, end: 20060112
  4. KETEK [Suspect]
     Indication: BRONCHITIS ACUTE
     Route: 048
     Dates: start: 20051228, end: 20060104
  5. MOTILIUM [Suspect]
     Indication: NAUSEA
     Route: 048
     Dates: end: 20060113
  6. MOTILIUM [Suspect]
     Indication: VOMITING
     Route: 048
     Dates: end: 20060113
  7. TRIFLUCAN [Suspect]
     Indication: DIARRHOEA
     Route: 048
     Dates: start: 20060110, end: 20060113
  8. AMLOR [Concomitant]
  9. SINEMET [Concomitant]
  10. NEXIUM [Concomitant]
     Route: 048
  11. IMOVANE [Concomitant]
  12. FORLAX [Concomitant]

REACTIONS (6)
  - CANDIDIASIS [None]
  - HYPOKINESIA [None]
  - MYDRIASIS [None]
  - SEPSIS [None]
  - STAPHYLOCOCCAL SEPSIS [None]
  - STATUS EPILEPTICUS [None]
